FAERS Safety Report 26077844 (Version 1)
Quarter: 2025Q4

REPORT INFORMATION
  Report Type: Spontaneous
  Country: US (occurrence: US)
  Receive Date: 20251122
  Receipt Date: 20251122
  Transmission Date: 20260118
  Serious: No
  Sender: MDD OPERATIONS
  Company Number: US-MDD US Operations-MDD202510-004031

PATIENT
  Age: 70 Year
  Sex: Male

DRUGS (2)
  1. ONAPGO [Suspect]
     Active Substance: APOMORPHINE HYDROCHLORIDE
     Indication: Parkinson^s disease
     Dosage: 1.0 MG PER HOUR FOR ABOUT 16 HOURS
     Dates: start: 20250929
  2. ONAPGO [Suspect]
     Active Substance: APOMORPHINE HYDROCHLORIDE
     Indication: On and off phenomenon
     Dosage: 1 CARTRIDGE UNDER THE SKIN FOR 16 HOURS OR LESS EACH DAY. CONTINUOUS DOSE (MAX 6MG/HR OR 98MG/DAY) A
     Dates: start: 202509

REACTIONS (3)
  - Hiccups [Recovered/Resolved]
  - Decreased appetite [Unknown]
  - Adverse event [Unknown]

NARRATIVE: CASE EVENT DATE: 20250929
